FAERS Safety Report 13835564 (Version 1)
Quarter: 2017Q3

REPORT INFORMATION
  Report Type: Spontaneous
  Country: US (occurrence: US)
  Receive Date: 20170804
  Receipt Date: 20170804
  Transmission Date: 20171127
  Serious: Yes (Other)
  Sender: FDA-Public Use
  Company Number: None

PATIENT
  Age: 67 Year
  Sex: Male
  Weight: 127.9 kg

DRUGS (21)
  1. GAMMAPLEX [Suspect]
     Active Substance: HUMAN IMMUNOGLOBULIN G
     Indication: CHRONIC INFLAMMATORY DEMYELINATING POLYRADICULONEUROPATHY
     Dosage: OTHER FREQUENCY:QDX2DAYS Q4WEEKS;?
     Route: 042
     Dates: start: 20170522, end: 20170523
  2. TYLENOL [Concomitant]
     Active Substance: ACETAMINOPHEN
  3. ADVAIR HFA [Concomitant]
     Active Substance: FLUTICASONE PROPIONATE\SALMETEROL XINAFOATE
  4. GLUCOPHAGE [Concomitant]
     Active Substance: METFORMIN HYDROCHLORIDE
  5. GAMMAPLEX [Suspect]
     Active Substance: HUMAN IMMUNOGLOBULIN G
     Indication: CHRONIC INFLAMMATORY DEMYELINATING POLYRADICULONEUROPATHY
     Dosage: OTHER FREQUENCY:QDX4DAYS Q4WEEKS;?
     Route: 042
     Dates: start: 20170410, end: 20170413
  6. LIPITOR [Concomitant]
     Active Substance: ATORVASTATIN CALCIUM
  7. LEVEMIR [Concomitant]
     Active Substance: INSULIN DETEMIR
  8. FLONASE [Concomitant]
     Active Substance: FLUTICASONE PROPIONATE
  9. BENADRYL [Concomitant]
     Active Substance: DIPHENHYDRAMINE HYDROCHLORIDE
  10. ZOVIRAX [Concomitant]
     Active Substance: ACYCLOVIR
  11. ZYLOPRIM [Concomitant]
     Active Substance: ALLOPURINOL
  12. CYMBALTA [Concomitant]
     Active Substance: DULOXETINE HYDROCHLORIDE
  13. NEURONTIN [Concomitant]
     Active Substance: GABAPENTIN
  14. ZESTRIL [Concomitant]
     Active Substance: LISINOPRIL
  15. VIAGRA [Concomitant]
     Active Substance: SILDENAFIL CITRATE
  16. NORVASC [Concomitant]
     Active Substance: AMLODIPINE BESYLATE
  17. BETAGAN [Concomitant]
     Active Substance: LEVOBUNOLOL HYDROCHLORIDE
  18. GLUCOTROL [Concomitant]
     Active Substance: GLIPIZIDE
  19. LUMIGAN [Concomitant]
     Active Substance: BIMATOPROST
  20. FLOMAX [Concomitant]
     Active Substance: TAMSULOSIN HYDROCHLORIDE
  21. NORMAL SALINE [Concomitant]
     Active Substance: SODIUM CHLORIDE

REACTIONS (3)
  - Skin exfoliation [None]
  - Pruritus generalised [None]
  - Rash [None]

NARRATIVE: CASE EVENT DATE: 20170605
